FAERS Safety Report 5058070-6 (Version None)
Quarter: 2006Q3

REPORT INFORMATION
  Report Type: 
  Country: None (occurrence: None)
  Receive Date: 20060721
  Receipt Date: 20060711
  Transmission Date: 20061208
  Serious: Yes (Hospitalization, Other)
  Sender: FDA-Public Use
  Company Number: 2006UW14368

PATIENT
  Age: 17236 Day
  Sex: Male

DRUGS (16)
  1. SEROQUEL [Suspect]
     Indication: AFFECTIVE DISORDER
     Dosage: 25-50 MG HS + 25 MG BID PRN
     Route: 048
     Dates: start: 20041206
  2. SEROQUEL [Suspect]
     Indication: BIPOLAR DISORDER
     Dosage: 25-50 MG HS + 25 MG BID PRN
     Route: 048
     Dates: start: 20041206
  3. SERTRALINE [Concomitant]
     Dates: start: 19991025
  4. SERTRALINE [Concomitant]
     Dates: start: 20020829
  5. LORAZEPAM [Concomitant]
     Indication: ANXIETY
     Dosage: Q4 HRS PRN
     Dates: start: 19991025
  6. LORAZEPAM [Concomitant]
     Dates: start: 20020829
  7. TRAZODONE HCL [Concomitant]
     Dates: start: 19991025
  8. TRAZODONE HCL [Concomitant]
     Dates: start: 20020829
  9. HYDROCODONE [Concomitant]
     Indication: BACK PAIN
  10. ZETIA [Concomitant]
     Indication: BLOOD CHOLESTEROL
     Route: 048
  11. FEXOFENADINE HCL [Concomitant]
     Indication: MULTIPLE ALLERGIES
     Route: 048
  12. HYDROCHLOROTHIAZIDE [Concomitant]
     Indication: BLOOD PRESSURE
     Route: 048
  13. MULTI-VITAMIN [Concomitant]
  14. PAROXETIENE HCL [Concomitant]
     Indication: AFFECTIVE DISORDER
     Route: 048
  15. PRAVASTATIN SODIUM [Concomitant]
     Indication: BLOOD CHOLESTEROL
     Route: 048
  16. RANITIDINE HCL [Concomitant]
     Indication: GASTRIC DISORDER
     Route: 048

REACTIONS (32)
  - ANXIETY [None]
  - ASPARTATE AMINOTRANSFERASE INCREASED [None]
  - BLOOD GLUCOSE INCREASED [None]
  - BLOOD POTASSIUM DECREASED [None]
  - DELIRIUM [None]
  - DEMENTIA [None]
  - DIABETES MELLITUS NON-INSULIN-DEPENDENT [None]
  - DIABETIC HYPEROSMOLAR COMA [None]
  - DIALYSIS [None]
  - ELECTROLYTE IMBALANCE [None]
  - ENCEPHALOPATHY [None]
  - HYPERGLYCAEMIA [None]
  - HYPERLIPIDAEMIA [None]
  - HYPOMAGNESAEMIA [None]
  - ISCHAEMIA [None]
  - METABOLIC ACIDOSIS [None]
  - MYOCARDIAL ISCHAEMIA [None]
  - NAUSEA [None]
  - NEUROLEPTIC MALIGNANT SYNDROME [None]
  - PANCREATITIS [None]
  - PANCREATITIS ACUTE [None]
  - PANCREATITIS NECROTISING [None]
  - PELVIC FLUID COLLECTION [None]
  - PERITONEAL EFFUSION [None]
  - PLEURAL EFFUSION [None]
  - PNEUMONIA [None]
  - PYREXIA [None]
  - RENAL FAILURE ACUTE [None]
  - RENAL TUBULAR NECROSIS [None]
  - RESPIRATORY FAILURE [None]
  - VOMITING [None]
  - WRONG TECHNIQUE IN DRUG USAGE PROCESS [None]
